FAERS Safety Report 4633602-8 (Version None)
Quarter: 2005Q2

REPORT INFORMATION
  Report Type: 
  Country: None (occurrence: None)
  Receive Date: 20050412
  Receipt Date: 20050412
  Transmission Date: 20051028
  Serious: Yes (Other)
  Sender: FDA-Public Use
  Company Number: None

PATIENT
  Sex: Female
  Weight: 109.7705 kg

DRUGS (1)
  1. NEURONTIN [Suspect]
     Indication: MUSCLE CONTRACTIONS INVOLUNTARY
     Dosage: 600 MG TID PO
     Route: 048

REACTIONS (2)
  - NIGHTMARE [None]
  - PHARMACEUTICAL PRODUCT COMPLAINT [None]
